FAERS Safety Report 18433901 (Version 3)
Quarter: 2021Q2

REPORT INFORMATION
  Report Type: Report from Study
  Country: None (occurrence: US)
  Receive Date: 20201028
  Receipt Date: 20210506
  Transmission Date: 20210717
  Serious: Yes (Hospitalization, Other)
  Sender: FDA-Public Use
  Company Number: US-ABBVIE-20K-163-3623472-00

PATIENT
  Age: 74 Year
  Sex: Female
  Weight: 91.71 kg

DRUGS (2)
  1. HUMIRA [Suspect]
     Active Substance: ADALIMUMAB
     Indication: PSORIASIS
     Route: 058
     Dates: start: 2016, end: 202009
  2. HUMIRA [Suspect]
     Active Substance: ADALIMUMAB
     Route: 058
     Dates: start: 202011

REACTIONS (8)
  - Intervertebral disc protrusion [Unknown]
  - Psoriasis [Recovered/Resolved]
  - Diverticulitis [Not Recovered/Not Resolved]
  - Dehydration [Recovered/Resolved]
  - Spinal disorder [Unknown]
  - Pain [Recovered/Resolved]
  - Colitis [Recovering/Resolving]
  - Malaise [Unknown]

NARRATIVE: CASE EVENT DATE: 202008
